FAERS Safety Report 6760092-1 (Version None)
Quarter: 2010Q2

REPORT INFORMATION
  Report Type: 
  Country: None (occurrence: None)
  Receive Date: 20100608
  Receipt Date: 20100527
  Transmission Date: 20101027
  Serious: Yes (Hospitalization)
  Sender: FDA-Public Use
  Company Number: JP-BRISTOL-MYERS SQUIBB COMPANY-14886352

PATIENT
  Age: 31 Year
  Sex: Female
  Weight: 74 kg

DRUGS (7)
  1. ABILIFY [Suspect]
     Indication: SCHIZOPHRENIA
     Dosage: 12MG:26SEP09-10NOV09;46D 18MG:11NOV-02DEC09,22D,15MG:03-08DEC09,6D,21MG:09-16DEC09,8D,
     Route: 048
  2. MYSLEE [Concomitant]
     Dosage: TABLET
     Dates: start: 20091111
  3. RIZE [Concomitant]
     Dosage: TABLET
     Dates: start: 20091111, end: 20091126
  4. LORAZEPAM [Concomitant]
     Dosage: TABS.
     Dates: start: 20091209
  5. RISPERDAL [Concomitant]
     Dates: start: 20100104
  6. NOVORAPID [Concomitant]
     Dosage: INJ.
  7. UTEMERIN TABS [Concomitant]

REACTIONS (3)
  - ABORTION THREATENED [None]
  - NORMAL NEWBORN [None]
  - PREGNANCY [None]
